FAERS Safety Report 13281636 (Version 2)
Quarter: 2017Q1

REPORT INFORMATION
  Report Type: Report from Study
  Country: US (occurrence: US)
  Receive Date: 20170301
  Receipt Date: 20170308
  Transmission Date: 20170428
  Serious: Yes (Hospitalization, Disabling, Other)
  Sender: FDA-Public Use
  Company Number: US-GILEAD-2017-0259894

PATIENT
  Age: 78 Year
  Sex: Female
  Weight: 63.49 kg

DRUGS (18)
  1. MUCINEX [Concomitant]
     Active Substance: GUAIFENESIN
  2. BUMEX [Concomitant]
     Active Substance: BUMETANIDE
  3. DELTASONE                          /00016001/ [Concomitant]
  4. VITAMIN D3 [Concomitant]
     Active Substance: CHOLECALCIFEROL
  5. ESTRACE [Concomitant]
     Active Substance: ESTRADIOL
  6. LOPRESSOR [Concomitant]
     Active Substance: METOPROLOL TARTRATE
  7. FERROUS SULFATE. [Concomitant]
     Active Substance: FERROUS SULFATE
  8. ADCIRCA [Concomitant]
     Active Substance: TADALAFIL
  9. LANOXIN [Concomitant]
     Active Substance: DIGOXIN
  10. VENTOLIN HFA [Concomitant]
     Active Substance: ALBUTEROL SULFATE
  11. ELIQUIS [Concomitant]
     Active Substance: APIXABAN
  12. KLOR-CON [Concomitant]
     Active Substance: POTASSIUM CHLORIDE
  13. PROAIR HFA [Concomitant]
     Active Substance: ALBUTEROL SULFATE
  14. SYMBICORT [Concomitant]
     Active Substance: BUDESONIDE\FORMOTEROL FUMARATE DIHYDRATE
  15. AMBRISENTAN [Suspect]
     Active Substance: AMBRISENTAN
     Indication: PULMONARY ARTERIAL HYPERTENSION
     Dosage: 10 MG, QD
     Route: 048
  16. PRILOSEC [Concomitant]
     Active Substance: OMEPRAZOLE MAGNESIUM
  17. ROBITUSSIN DM [Concomitant]
     Active Substance: DEXTROMETHORPHAN HYDROBROMIDE\GUAIFENESIN
  18. OXYGEN. [Concomitant]
     Active Substance: OXYGEN

REACTIONS (2)
  - Hypoacusis [Not Recovered/Not Resolved]
  - Pneumonia [Recovered/Resolved]

NARRATIVE: CASE EVENT DATE: 20160225
